FAERS Safety Report 6235651-5 (Version None)
Quarter: 2009Q2

REPORT INFORMATION
  Report Type: 
  Country: None (occurrence: None)
  Receive Date: 20090616
  Receipt Date: 20090603
  Transmission Date: 20091009
  Serious: Yes (Hospitalization)
  Sender: FDA-Public Use
  Company Number: 235479K09USA

PATIENT
  Age: 38 Year
  Sex: Female

DRUGS (4)
  1. REBIF [Suspect]
     Indication: MULTIPLE SCLEROSIS
     Dosage: 44 MCG, 3 IN 1 WEEKS, SUBCUTANEOUS
     Route: 058
     Dates: start: 20090306
  2. LASIX (FUROSEMIDE /00032601/) [Concomitant]
  3. LOPRESSOR [Concomitant]
  4. AMITRIPTYLINE HCL [Concomitant]

REACTIONS (4)
  - HYPOAESTHESIA [None]
  - MOVEMENT DISORDER [None]
  - OEDEMA PERIPHERAL [None]
  - PARAESTHESIA [None]
